FAERS Safety Report 22277299 (Version 1)
Quarter: 2023Q2

REPORT INFORMATION
  Report Type: Spontaneous
  Country: GB (occurrence: None)
  Receive Date: 20230503
  Receipt Date: 20230503
  Transmission Date: 20230721
  Serious: Yes (Other)
  Sender: FDA-Public Use
  Company Number: GB-MHRA-MED-202304271302186290-BQFZM

PATIENT
  Sex: Male

DRUGS (1)
  1. ESBRIET [Suspect]
     Active Substance: PIRFENIDONE
     Indication: Idiopathic pulmonary fibrosis
     Dosage: 3 TABLETS (801MG) 3 TIMES A DAY; ;
     Route: 048
     Dates: start: 20230224

REACTIONS (3)
  - Rash [Recovering/Resolving]
  - Lip swelling [Recovering/Resolving]
  - Eye swelling [Recovering/Resolving]
